FAERS Safety Report 8208613 (Version 2)
Quarter: 2012Q4

REPORT INFORMATION
  Report Type: 
  Country: MX (occurrence: MX)
  Receive Date: 20111028
  Receipt Date: 20120828
  Transmission Date: 20130627
  Serious: Yes (Death)
  Sender: FDA-Public Use
  Company Number: PHHY2011MX94704

PATIENT
  Age: 70 Year
  Sex: Female

DRUGS (1)
  1. EXELON PATCH [Suspect]
     Indication: DEMENTIA ALZHEIMER^S TYPE
     Dosage: 4.5 mg, QD
     Route: 062
     Dates: start: 201107, end: 201107

REACTIONS (7)
  - Dementia Alzheimer^s type [Fatal]
  - Rheumatoid arthritis [Fatal]
  - Parkinson^s disease [Fatal]
  - Concomitant disease progression [Fatal]
  - Eating disorder [Unknown]
  - Arthritis [Unknown]
  - Fatigue [Unknown]
